FAERS Safety Report 9287347 (Version 1)
Quarter: 2013Q2

REPORT INFORMATION
  Report Type: Spontaneous
  Country: AU (occurrence: AU)
  Receive Date: 20130514
  Receipt Date: 20130514
  Transmission Date: 20140414
  Serious: Yes (Hospitalization)
  Sender: FDA-Public Use
  Company Number: AU-009507513-1305AUS005054

PATIENT
  Age: 74 Year
  Sex: Female

DRUGS (5)
  1. ESMERON [Suspect]
     Dosage: 50 MG, UNK
     Dates: start: 20120612, end: 20120612
  2. CRIXOFOL [Suspect]
     Dosage: 120 MG, UNK
     Dates: start: 20120612, end: 20120612
  3. FENTANYL [Suspect]
     Dosage: 100 MG, UNK
     Dates: start: 20120612, end: 20120612
  4. CEFAZOLIN SODIUM [Suspect]
     Dosage: 1 G, UNK
     Dates: start: 20120612, end: 20120612
  5. WARFARIN SODIUM [Concomitant]
     Indication: ATRIAL FIBRILLATION

REACTIONS (2)
  - Blood pressure systolic decreased [Recovered/Resolved]
  - Bronchospasm [None]
